FAERS Safety Report 7013237-2 (Version None)
Quarter: 2010Q3

REPORT INFORMATION
  Report Type: 
  Country: None (occurrence: None)
  Receive Date: 20100924
  Receipt Date: 20100921
  Transmission Date: 20110219
  Serious: Yes (Hospitalization)
  Sender: FDA-Public Use
  Company Number: ES-MERCK-1009ESP00022

PATIENT
  Age: 38 Year
  Sex: Male

DRUGS (6)
  1. PRIMAXIN [Suspect]
     Indication: ABDOMINAL INFECTION
     Route: 042
     Dates: start: 20100619, end: 20100619
  2. METOCLOPRAMIDE HYDROCHLORIDE [Concomitant]
     Route: 065
  3. METHOTREXATE [Concomitant]
     Indication: CROHN'S DISEASE
     Route: 065
  4. ONDANSETRON [Suspect]
     Indication: VOMITING
     Route: 042
     Dates: start: 20100619, end: 20100619
  5. FOLIC ACID [Concomitant]
     Indication: FOLATE DEFICIENCY
     Route: 065
  6. METRONIDAZOLE [Suspect]
     Indication: ABDOMINAL INFECTION
     Route: 042
     Dates: start: 20100619, end: 20100621

REACTIONS (2)
  - CONVULSION [None]
  - DRUG INTERACTION [None]
